FAERS Safety Report 16669500 (Version 1)
Quarter: 2019Q3

REPORT INFORMATION
  Report Type: Spontaneous
  Country: DE (occurrence: DE)
  Receive Date: 20190805
  Receipt Date: 20190805
  Transmission Date: 20191004
  Serious: Yes (Hospitalization, Other)
  Sender: FDA-Public Use
  Company Number: DE-PROVELL PHARMACEUTICALS-2072762

PATIENT
  Age: 37 Year
  Sex: Female
  Weight: 81 kg

DRUGS (5)
  1. EUTHYROX [Suspect]
     Active Substance: LEVOTHYROXINE SODIUM
     Dates: start: 201604
  2. VALSACOR [Suspect]
     Active Substance: VALSARTAN
     Dates: start: 201612, end: 20190630
  3. VITAMIN D3 [Concomitant]
     Active Substance: CHOLECALCIFEROL
     Dates: start: 2017
  4. VITAMIN B12 [Concomitant]
     Active Substance: CYANOCOBALAMIN
     Dates: start: 2011
  5. EUTHYROX [Suspect]
     Active Substance: LEVOTHYROXINE SODIUM
     Indication: AUTOIMMUNE THYROIDITIS
     Dates: start: 20170811

REACTIONS (17)
  - Vomiting [Recovered/Resolved]
  - Nausea [Recovered/Resolved]
  - Anti-thyroid antibody positive [None]
  - Incorrect dosage administered [None]
  - Weight decreased [Recovered/Resolved]
  - Blood sodium decreased [None]
  - Hypertension [Recovered/Resolved]
  - Blood thyroid stimulating hormone decreased [None]
  - Temperature intolerance [None]
  - Blood glucose increased [None]
  - Dizziness [Recovered/Resolved]
  - Photophobia [None]
  - Urine ketone body present [None]
  - Cardiovascular disorder [None]
  - Wrong technique in product usage process [None]
  - C-reactive protein increased [None]
  - Weight increased [Not Recovered/Not Resolved]

NARRATIVE: CASE EVENT DATE: 20181001
